FAERS Safety Report 25561986 (Version 1)
Quarter: 2025Q3

REPORT INFORMATION
  Report Type: Spontaneous
  Country: US (occurrence: US)
  Receive Date: 20250716
  Receipt Date: 20250716
  Transmission Date: 20251021
  Serious: No
  Sender: NOVO NORDISK
  Company Number: US-NOVOPROD-1321078

PATIENT
  Age: 73 Year
  Sex: Male

DRUGS (1)
  1. OZEMPIC [Suspect]
     Active Substance: SEMAGLUTIDE
     Indication: Type 2 diabetes mellitus
     Route: 058
     Dates: start: 20240224, end: 20240523

REACTIONS (6)
  - Increased appetite [Unknown]
  - Vomiting [Recovered/Resolved]
  - Constipation [Recovered/Resolved]
  - Dizziness [Unknown]
  - Nausea [Unknown]
  - Asthenia [Recovered/Resolved]

NARRATIVE: CASE EVENT DATE: 20240201
